FAERS Safety Report 19840991 (Version 1)
Quarter: 2021Q3

REPORT INFORMATION
  Report Type: Report from Study
  Country: None (occurrence: US)
  Receive Date: 20210916
  Receipt Date: 20210916
  Transmission Date: 20211014
  Serious: Yes (Death)
  Sender: FDA-Public Use
  Company Number: US-ABBVIE-21K-163-4079752-00

PATIENT
  Sex: Male
  Weight: 89.44 kg

DRUGS (5)
  1. MODERNA COVID?19 VACCINE [Concomitant]
     Active Substance: CX-024414
     Dosage: PFIZER
     Route: 030
     Dates: start: 20210826, end: 20210826
  2. CREON [Suspect]
     Active Substance: PANCRELIPASE AMYLASE\PANCRELIPASE LIPASE\PANCRELIPASE PROTEASE
     Indication: PANCREATIC CARCINOMA
     Dosage: 2 CAPSULES PER MEAL AND 1 CAPSULE PER SNACKS
     Route: 058
     Dates: start: 202107, end: 202108
  3. MORPHINE [Concomitant]
     Active Substance: MORPHINE
     Indication: PAIN
  4. MODERNA COVID?19 VACCINE [Concomitant]
     Active Substance: CX-024414
     Indication: COVID-19 IMMUNISATION
     Dosage: MODERNA
     Route: 030
     Dates: start: 20210220, end: 20210220
  5. MODERNA COVID?19 VACCINE [Concomitant]
     Active Substance: CX-024414
     Dosage: PFIZER
     Route: 030
     Dates: start: 20210313, end: 20210313

REACTIONS (3)
  - Abdominal pain upper [Fatal]
  - Diabetes mellitus inadequate control [Fatal]
  - Blood glucose increased [Unknown]

NARRATIVE: CASE EVENT DATE: 2021
